FAERS Safety Report 4474625-1 (Version None)
Quarter: 2004Q4

REPORT INFORMATION
  Report Type: 
  Country: None (occurrence: None)
  Receive Date: 20041008
  Receipt Date: 20040924
  Transmission Date: 20050328
  Serious: Yes (Hospitalization)
  Sender: FDA-Public Use
  Company Number: S04-USA-05604-02

PATIENT
  Age: 77 Year
  Sex: Female
  Weight: 63.05 kg

DRUGS (13)
  1. NAMENDA [Suspect]
     Indication: DEMENTIA
     Dosage: 15 MG QD PO
     Route: 048
     Dates: start: 20040813, end: 20040817
  2. NAMENDA [Suspect]
     Indication: DEMENTIA
     Dosage: 5 MG QD PO
     Route: 048
     Dates: start: 20040728, end: 20040805
  3. NAMENDA [Suspect]
     Indication: DEMENTIA
     Dosage: 5 MG BID PO
     Route: 048
     Dates: start: 20040806, end: 20040812
  4. MIRAPEX [Concomitant]
  5. AGGRENOX [Concomitant]
  6. METFORMIN HCL [Concomitant]
  7. DIOVAN [Concomitant]
  8. FOLIC ACID [Concomitant]
  9. ZANTAC [Concomitant]
  10. NORVASC [Concomitant]
  11. LEXAPRO [Concomitant]
  12. ARICEPT [Concomitant]
  13. SINEMET [Concomitant]

REACTIONS (7)
  - ABDOMINAL DISTENSION [None]
  - DUODENAL ULCER [None]
  - GASTRITIS [None]
  - HAEMORRHAGE [None]
  - NAUSEA [None]
  - VOMITING [None]
  - WEIGHT DECREASED [None]
